FAERS Safety Report 6362444-0 (Version None)
Quarter: 2009Q3

REPORT INFORMATION
  Report Type: 
  Country: None (occurrence: None)
  Receive Date: 20090918
  Receipt Date: 20090603
  Transmission Date: 20100115
  Serious: No
  Sender: FDA-Public Use
  Company Number: US-ABBOTT-09P-163-0577496-00

PATIENT
  Sex: Female

DRUGS (3)
  1. HUMIRA [Suspect]
     Indication: PSORIASIS
     Route: 058
     Dates: start: 20090301
  2. ADVIL [Concomitant]
     Indication: HEADACHE
     Route: 048
  3. TRI-SPRINTEC [Concomitant]
     Indication: CONTRACEPTION
     Route: 048

REACTIONS (1)
  - PSORIASIS [None]
